FAERS Safety Report 6742645-X (Version None)
Quarter: 2010Q2

REPORT INFORMATION
  Report Type: 
  Country: None (occurrence: None)
  Receive Date: 20100524
  Receipt Date: 20100325
  Transmission Date: 20101027
  Serious: No
  Sender: FDA-Public Use
  Company Number: ACO_00660_2010

PATIENT
  Age: 51 Year
  Sex: Female
  Weight: 54.4316 kg

DRUGS (6)
  1. AMPYRA [Suspect]
     Indication: MULTIPLE SCLEROSIS
     Dosage: (10 MG BID ORAL)
     Route: 048
     Dates: start: 20100320
  2. TIZANIDINE [Concomitant]
  3. PROVIGIL [Concomitant]
  4. OXYBUTYNIN CHLORIDE [Concomitant]
  5. GABAPENTIN [Concomitant]
  6. COPAXONE [Concomitant]

REACTIONS (1)
  - PAIN IN EXTREMITY [None]
